FAERS Safety Report 4649711-3 (Version None)
Quarter: 2005Q2

REPORT INFORMATION
  Report Type: 
  Country: None (occurrence: None)
  Receive Date: 20050502
  Receipt Date: 20050425
  Transmission Date: 20051028
  Serious: Yes (Death, Hospitalization, Other)
  Sender: FDA-Public Use
  Company Number: PHNU2005DE01750

PATIENT
  Age: 3 Year
  Sex: Male

DRUGS (4)
  1. SANDIMMUNE [Suspect]
     Indication: HEART TRANSPLANT
     Route: 048
  2. AZATHIOPRINE [Concomitant]
     Indication: IMMUNOSUPPRESSION
  3. STEROIDS NOS [Concomitant]
     Indication: IMMUNOSUPPRESSION
  4. ANTIBIOTICS [Concomitant]

REACTIONS (11)
  - APNOEA [None]
  - BRONCHITIS [None]
  - CARDIAC ARREST [None]
  - CARDIAC FAILURE [None]
  - CATHETER PLACEMENT [None]
  - COMA [None]
  - DRUG LEVEL DECREASED [None]
  - HEART TRANSPLANT REJECTION [None]
  - INFECTION [None]
  - PLEURAL EFFUSION [None]
  - VOMITING [None]
